FAERS Safety Report 6187881-9 (Version None)
Quarter: 2009Q2

REPORT INFORMATION
  Report Type: 
  Country: None (occurrence: None)
  Receive Date: 20090513
  Receipt Date: 20090506
  Transmission Date: 20091009
  Serious: Yes (Other)
  Sender: FDA-Public Use
  Company Number: US-ALLERGAN-0903571US

PATIENT
  Age: 82 Year
  Sex: Female

DRUGS (9)
  1. RESTASIS [Suspect]
     Indication: DRY EYE
     Dosage: UNK, BID
     Route: 047
     Dates: start: 20090218, end: 20090221
  2. ALPHAGAN P [Suspect]
     Indication: GLAUCOMA
     Dosage: UNK, BID
     Route: 047
     Dates: start: 20060215
  3. GLIPIZIDE [Concomitant]
     Dosage: 5 MG, QD
  4. LISINOPRIL [Concomitant]
     Dosage: 10 MG, QD
  5. TRIAMTEREEN/HYDROCHLOOTTHIAZIDE [Concomitant]
     Dosage: UNK, QD
  6. GABAPENTIN [Concomitant]
     Dosage: 300 MG, TID
  7. COLAZAL [Concomitant]
     Dosage: 750 MG, TID
  8. ATENOLOL [Concomitant]
     Dosage: 50 MG, QD
  9. DIAZEPAM [Concomitant]

REACTIONS (2)
  - PRURITUS GENERALISED [None]
  - SWELLING FACE [None]
